FAERS Safety Report 8392169-1 (Version None)
Quarter: 2012Q2

REPORT INFORMATION
  Report Type: 
  Country: None (occurrence: None)
  Receive Date: 20120529
  Receipt Date: 20120525
  Transmission Date: 20120825
  Serious: Yes (Hospitalization, Other)
  Sender: FDA-Public Use
  Company Number: US-PFIZER INC-2012126347

PATIENT
  Sex: Female
  Weight: 54 kg

DRUGS (15)
  1. LEVOXYL [Concomitant]
     Indication: THYROID DISORDER
     Dosage: 88 UG, UNK
  2. POTASSIUM [Concomitant]
     Dosage: 500 MG, UNK
  3. SYNTHROID [Concomitant]
     Indication: HYPOTHYROIDISM
     Dosage: UNK
  4. SERTRALINE [Concomitant]
     Dosage: 50 MG, DAILY
     Dates: start: 20120101
  5. POTASSIUM [Concomitant]
     Dosage: UNK
  6. VITAMIN D [Concomitant]
     Dosage: UNK
  7. VITAMIN B-12 [Concomitant]
     Dosage: UNK
  8. LOPID [Suspect]
     Indication: BLOOD CHOLESTEROL INCREASED
     Dosage: 600 MG, 1X/DAY
     Route: 048
  9. NICOTINE [Concomitant]
     Indication: SMOKING CESSATION THERAPY
     Dosage: UNK
  10. TRAMADOL [Concomitant]
     Dosage: 50 MG, UNK
  11. TRAMADOL [Concomitant]
     Indication: PAIN
     Dosage: 50 MG, UNK
     Dates: start: 20120101
  12. ALPRAZOLAM [Concomitant]
     Indication: SLEEP DISORDER
     Dosage: UNK, DAILY
  13. RISPERIDONE [Concomitant]
     Indication: SLEEP DISORDER
     Dosage: 0.5 MG, 1X/DAY
  14. LIPITOR [Suspect]
     Indication: BLOOD CHOLESTEROL INCREASED
     Dosage: 20 MG, 1X/DAY
     Route: 048
  15. RISPERIDONE [Suspect]
     Dosage: 0.5 MG, UNK
     Dates: start: 20120101

REACTIONS (10)
  - WEIGHT DECREASED [None]
  - DYSPEPSIA [None]
  - PHARYNGEAL NEOPLASM [None]
  - CONTUSION [None]
  - VOMITING [None]
  - SKIN DISCOLOURATION [None]
  - INTRACRANIAL ANEURYSM [None]
  - BLISTER [None]
  - ABDOMINAL DISCOMFORT [None]
  - NAUSEA [None]
